FAERS Safety Report 18674053 (Version 1)
Quarter: 2020Q4

REPORT INFORMATION
  Report Type: Spontaneous
  Country: SE (occurrence: SE)
  Receive Date: 20201229
  Receipt Date: 20201229
  Transmission Date: 20210114
  Serious: Yes (Death)
  Sender: FDA-Public Use
  Company Number: SE-ACCORD-212535

PATIENT
  Age: 70 Year
  Sex: Male

DRUGS (4)
  1. CAPECITABINE. [Suspect]
     Active Substance: CAPECITABINE
     Indication: COLORECTAL CANCER RECURRENT
     Dosage: STRENGTH 500 MG, DOSAGE 3 + 4 TABLETS
     Route: 048
     Dates: start: 20200813, end: 20200909
  2. CAPECITABINE. [Suspect]
     Active Substance: CAPECITABINE
     Indication: RADIOTHERAPY
  3. SIMIDON [Concomitant]
     Active Substance: SIMVASTATIN
  4. ENALAPRIL [Concomitant]
     Active Substance: ENALAPRIL

REACTIONS (1)
  - Gastrointestinal haemorrhage [Fatal]

NARRATIVE: CASE EVENT DATE: 202009
